FAERS Safety Report 4537639-9 (Version None)
Quarter: 2004Q4

REPORT INFORMATION
  Report Type: 
  Country: None (occurrence: None)
  Receive Date: 20041208
  Receipt Date: 20040518
  Transmission Date: 20050328
  Serious: Yes (Other)
  Sender: FDA-Public Use
  Company Number: 138908USA

PATIENT
  Age: 31 Year
  Sex: Male
  Weight: 83.0083 kg

DRUGS (2)
  1. DIPYRIDAMOLE [Suspect]
     Dates: start: 20040511, end: 20040511
  2. THALLIUM [Concomitant]

REACTIONS (5)
  - ASTHENIA [None]
  - BLOOD PRESSURE DECREASED [None]
  - DIZZINESS [None]
  - HEART RATE DECREASED [None]
  - LOSS OF CONSCIOUSNESS [None]
